FAERS Safety Report 17110004 (Version 1)
Quarter: 2019Q4

REPORT INFORMATION
  Report Type: Spontaneous
  Country: MX (occurrence: MX)
  Receive Date: 20191204
  Receipt Date: 20191204
  Transmission Date: 20200122
  Serious: Yes (Other)
  Sender: FDA-Public Use
  Company Number: NVSC2019MX055466

PATIENT
  Age: 23 Year
  Sex: Female
  Weight: 52 kg

DRUGS (2)
  1. METHYLPREDNISOLONE. [Suspect]
     Active Substance: METHYLPREDNISOLONE
     Indication: PROTEINURIA
     Dosage: 1 G (3 BOLUSES)
     Route: 065
  2. PREDNISONE. [Suspect]
     Active Substance: PREDNISONE
     Indication: PROTEINURIA
     Dosage: 40 MG
     Route: 048

REACTIONS (4)
  - Abortion spontaneous [Unknown]
  - Maternal exposure during pregnancy [Unknown]
  - Proteinuria [Recovered/Resolved]
  - Product use in unapproved indication [Unknown]
